FAERS Safety Report 4603466-7 (Version None)
Quarter: 2005Q1

REPORT INFORMATION
  Report Type: 
  Country: None (occurrence: None)
  Receive Date: 20050309
  Receipt Date: 20050112
  Transmission Date: 20050727
  Serious: Yes (Other)
  Sender: FDA-Public Use
  Company Number: BE-MERCK-0501BEL00006

PATIENT
  Age: 53 Year
  Sex: Female
  Weight: 62 kg

DRUGS (2)
  1. FOSAMAX [Suspect]
     Indication: OSTEOPOROSIS
     Route: 048
     Dates: start: 20050130
  2. FOSAMAX [Suspect]
     Route: 048
     Dates: end: 20050101

REACTIONS (2)
  - DYSPHAGIA [None]
  - THROAT IRRITATION [None]
